FAERS Safety Report 24087926 (Version 1)
Quarter: 2024Q3

REPORT INFORMATION
  Report Type: Spontaneous
  Country: CN (occurrence: CN)
  Receive Date: 20240715
  Receipt Date: 20240715
  Transmission Date: 20241016
  Serious: Yes (Hospitalization, Disabling)
  Sender: HISUN PHARMACEUTICALS
  Company Number: CN-Hisun Pharmaceuticals-2159108

PATIENT
  Age: 74 Year
  Sex: Female
  Weight: 57 kg

DRUGS (1)
  1. IRBESARTAN [Suspect]
     Active Substance: IRBESARTAN
     Indication: Hypertension
     Route: 048
     Dates: start: 20240625, end: 20240625

REACTIONS (4)
  - Dyspnoea [Recovered/Resolved]
  - Vomiting [Recovered/Resolved]
  - Nausea [Recovered/Resolved]
  - Flushing [Recovered/Resolved]

NARRATIVE: CASE EVENT DATE: 20240625
